FAERS Safety Report 4373094-X (Version None)
Quarter: 2004Q2

REPORT INFORMATION
  Report Type: 
  Country: None (occurrence: None)
  Receive Date: 20040526
  Receipt Date: 20040513
  Transmission Date: 20050107
  Serious: Yes (Hospitalization)
  Sender: FDA-Public Use
  Company Number: 2004032690

PATIENT
  Age: 74 Year
  Sex: 0

DRUGS (8)
  1. GLIPIZIDE [Suspect]
     Indication: DIABETES MELLITUS
     Dosage: 15 MG (15 MG, 1 IN 1 D), ORAL
     Route: 048
  2. METFORMIN HCL [Suspect]
     Indication: DIABETES MELLITUS
     Dosage: 2 GRAM (1 GRAM, 2 IN 1 D), ORAL
     Route: 048
  3. ATENOLOL [Concomitant]
  4. DILTIAZEM [Concomitant]
  5. BUMETANIDE (BUMETADINE) [Concomitant]
  6. PROPAFENONE HCL [Concomitant]
  7. LACTULOSE [Concomitant]
  8. POTASSIUM (POTASSIUM) [Concomitant]

REACTIONS (2)
  - BLOOD GLUCOSE DECREASED [None]
  - FEELING ABNORMAL [None]
